FAERS Safety Report 17281601 (Version 1)
Quarter: 2020Q1

REPORT INFORMATION
  Report Type: Spontaneous
  Country: GB (occurrence: GB)
  Receive Date: 20200117
  Receipt Date: 20200117
  Transmission Date: 20200409
  Serious: Yes (Hospitalization)
  Sender: FDA-Public Use
  Company Number: GB-TEVA-2020-GB-1168531

PATIENT
  Age: 88 Year
  Sex: Female

DRUGS (15)
  1. ACETYLSALICYLIC ACID [Concomitant]
     Active Substance: ASPIRIN
     Dosage: 75 MG ON MORNING
     Route: 048
  2. DIAZEPAM. [Concomitant]
     Active Substance: DIAZEPAM
     Dosage: 6 MG
     Route: 048
     Dates: start: 20191028, end: 20191029
  3. CO-DYDRAMOL [Concomitant]
     Active Substance: ACETAMINOPHEN\DIHYDROCODEINE
     Dosage: 1-2 QDS, 10MG/500MG
     Route: 048
     Dates: start: 20191023, end: 20191024
  4. FUROSEMIDE. [Concomitant]
     Active Substance: FUROSEMIDE
     Dosage: 20 MG ON MORNING
     Route: 048
  5. MACROGOL [Concomitant]
     Active Substance: POLYETHYLENE GLYCOLS
     Dosage: 2 DF - SACHETS
     Route: 048
     Dates: start: 20191028
  6. CYCLIZINE [Concomitant]
     Active Substance: CYCLIZINE
     Dosage: 50 MG TDS
     Route: 048
     Dates: start: 20191101
  7. OMEPRAZOLE. [Concomitant]
     Active Substance: OMEPRAZOLE
     Dosage: 20 MG OM, ONLY ONE DOSE TAKEN PRIOR TO ADMISSION
     Route: 048
     Dates: start: 20191104
  8. BUPRENORPHINE. [Concomitant]
     Active Substance: BUPRENORPHINE
     Dosage: 5 MCG
     Route: 062
     Dates: start: 20191029, end: 20191029
  9. ALENDRONIC ACID [Concomitant]
     Active Substance: ALENDRONIC ACID
     Dosage: 70 MG PER 1 WEEK
     Route: 048
  10. BUPRENORPHINE. [Concomitant]
     Active Substance: BUPRENORPHINE
     Dosage: 5 MCG
     Route: 062
     Dates: start: 20191029, end: 20191029
  11. CYCLIZINE [Concomitant]
     Active Substance: CYCLIZINE
     Dosage: 30 MG THREE TIMES A DAY
     Route: 048
     Dates: start: 20191101
  12. NAPROXEN. [Suspect]
     Active Substance: NAPROXEN
     Indication: BACK PAIN
     Dosage: 1000 MG ONLY ONE DOSE TAKEN PRIOR TO ADMISSION
     Route: 048
     Dates: start: 20191104
  13. SIMVASTATIN. [Concomitant]
     Active Substance: SIMVASTATIN
     Dosage: 20 MG ON NIGHT
     Route: 048
  14. COLECALCIFEROL [Concomitant]
     Active Substance: CHOLECALCIFEROL
     Dosage: 4000 IU ON MORNING
     Route: 048
  15. AMLODIPINE [Concomitant]
     Active Substance: AMLODIPINE BESYLATE
     Dosage: 5 MG ON MORNING
     Route: 048

REACTIONS (4)
  - Drug ineffective [Unknown]
  - Back pain [Recovered/Resolved]
  - Duodenitis [Unknown]
  - Vomiting [Recovered/Resolved]

NARRATIVE: CASE EVENT DATE: 20191022
